FAERS Safety Report 11292131 (Version 1)
Quarter: 2015Q3

REPORT INFORMATION
  Report Type: Spontaneous
  Country: US (occurrence: None)
  Receive Date: 20150721
  Receipt Date: 20150721
  Transmission Date: 20151125
  Serious: Yes (Life-Threatening, Hospitalization)
  Sender: FDA-Public Use
  Company Number: None

PATIENT
  Age: 62 Year
  Sex: Male

DRUGS (1)
  1. PACLITAXEL. [Suspect]
     Active Substance: PACLITAXEL
     Indication: LUNG NEOPLASM MALIGNANT
     Route: 042
     Dates: start: 20100910, end: 20100910

REACTIONS (8)
  - Dyspnoea [None]
  - Photopsia [None]
  - Urinary incontinence [None]
  - Chest discomfort [None]
  - Cardio-respiratory arrest [None]
  - Confusional state [None]
  - Unresponsive to stimuli [None]
  - Syncope [None]

NARRATIVE: CASE EVENT DATE: 20100910
